FAERS Safety Report 6801454-3 (Version None)
Quarter: 2010Q2

REPORT INFORMATION
  Report Type: 
  Country: None (occurrence: None)
  Receive Date: 20100629
  Receipt Date: 20100622
  Transmission Date: 20101027
  Serious: Yes (Death, Hospitalization)
  Sender: FDA-Public Use
  Company Number: CO-ROCHE-710882

PATIENT
  Sex: Female

DRUGS (2)
  1. AVASTIN [Suspect]
     Indication: BREAST CANCER
     Route: 042
     Dates: start: 20100203, end: 20100430
  2. XELODA [Suspect]
     Indication: BREAST CANCER
     Dosage: FREQUENCY REPORTED AS: QD
     Route: 048
     Dates: start: 20100203, end: 20100515

REACTIONS (1)
  - MALIGNANT NEOPLASM PROGRESSION [None]
